FAERS Safety Report 5505279-0 (Version None)
Quarter: 2007Q4

REPORT INFORMATION
  Report Type: 
  Country: None (occurrence: None)
  Receive Date: 20071102
  Receipt Date: 20071025
  Transmission Date: 20080405
  Serious: Yes (Other)
  Sender: FDA-Public Use
  Company Number: US-JNJFOC-20071007414

PATIENT
  Sex: Female

DRUGS (1)
  1. LEVAQUIN [Suspect]
     Indication: SINUSITIS
     Route: 048

REACTIONS (5)
  - INSOMNIA [None]
  - JOINT INJURY [None]
  - MUSCLE INJURY [None]
  - PHOTOSENSITIVITY REACTION [None]
  - VISION BLURRED [None]
